FAERS Safety Report 19972837 (Version 2)
Quarter: 2021Q4

REPORT INFORMATION
  Report Type: Spontaneous
  Country: FR (occurrence: FR)
  Receive Date: 20211020
  Receipt Date: 20211026
  Transmission Date: 20220303
  Serious: Yes (Hospitalization, Other)
  Sender: FDA-Public Use
  Company Number: None

PATIENT
  Age: 3 Year
  Sex: Male

DRUGS (9)
  1. ILARIS [Suspect]
     Active Substance: CANAKINUMAB
     Indication: Still^s disease
     Dosage: 4 MG/KG (2 ADMINISTRATIONS)
     Route: 058
     Dates: start: 20210726, end: 20210826
  2. KINERET [Suspect]
     Active Substance: ANAKINRA
     Indication: Still^s disease
     Dosage: 1 DF, QD
     Route: 058
     Dates: start: 20210520, end: 202107
  3. KINERET [Suspect]
     Active Substance: ANAKINRA
     Dosage: 2 MG/KG, QD (KINERET 100 MG, SOLUTION INJECTABLE EN SERINGUE PREREMPLIE)
     Route: 065
     Dates: start: 20210520, end: 20210723
  4. SODIUM HYDROXIDE [Concomitant]
     Active Substance: SODIUM HYDROXIDE
     Indication: Product used for unknown indication
     Dosage: UNK
     Route: 065
  5. WATER FOR INJECTION [Concomitant]
     Active Substance: WATER
     Indication: Product used for unknown indication
     Dosage: UNK
     Route: 065
  6. SODIUM CHLORIDE [Concomitant]
     Active Substance: SODIUM CHLORIDE
     Indication: Product used for unknown indication
     Dosage: UNK
     Route: 065
  7. POLYSORBATE 80 [Concomitant]
     Active Substance: POLYSORBATE 80
     Indication: Product used for unknown indication
     Dosage: UNK
     Route: 065
  8. EDETATE DISODIUM [Concomitant]
     Active Substance: EDETATE DISODIUM
     Indication: Product used for unknown indication
     Dosage: UNK
     Route: 065
  9. SODIUM CITRATE [Concomitant]
     Active Substance: SODIUM CITRATE
     Indication: Product used for unknown indication
     Dosage: UNK
     Route: 065

REACTIONS (3)
  - Eosinophilia [Recovering/Resolving]
  - Neutrophil count increased [Unknown]
  - Eosinophil count increased [Unknown]

NARRATIVE: CASE EVENT DATE: 20210616
